FAERS Safety Report 11733122 (Version 1)
Quarter: 2015Q4

REPORT INFORMATION
  Report Type: Spontaneous
  Country: US (occurrence: US)
  Receive Date: 20151110
  Receipt Date: 20151110
  Transmission Date: 20160304
  Serious: No
  Sender: FDA-Public Use
  Company Number: US-ELI_LILLY_AND_COMPANY-US201205003783

PATIENT
  Age: 84 Year
  Sex: Female

DRUGS (1)
  1. FORTEO [Suspect]
     Active Substance: TERIPARATIDE
     Indication: OSTEOPOROSIS
     Dosage: UNK, QD
     Dates: start: 201204

REACTIONS (7)
  - Constipation [Unknown]
  - Feeding disorder [Unknown]
  - Myalgia [Unknown]
  - Muscle spasms [Unknown]
  - Disorientation [Unknown]
  - Back pain [Unknown]
  - Pain in extremity [Unknown]
